FAERS Safety Report 9057521 (Version 1)
Quarter: 2013Q1

REPORT INFORMATION
  Report Type: Spontaneous
  Country: US (occurrence: US)
  Receive Date: 20130204
  Receipt Date: 20130204
  Transmission Date: 20140127
  Serious: Yes (Other)
  Sender: FDA-Public Use
  Company Number: US-PFIZER INC-2013015619

PATIENT
  Age: 67 Year
  Sex: Male
  Weight: 87.53 kg

DRUGS (1)
  1. RAPAMUNE [Suspect]
     Indication: BONE MARROW TRANSPLANT
     Dosage: UNK
     Dates: start: 2011

REACTIONS (3)
  - Leukaemia [Not Recovered/Not Resolved]
  - Neoplasm recurrence [Not Recovered/Not Resolved]
  - Off label use [Unknown]
